FAERS Safety Report 6067248-4 (Version None)
Quarter: 2009Q1

REPORT INFORMATION
  Report Type: 
  Country: None (occurrence: None)
  Receive Date: 20090205
  Receipt Date: 20090202
  Transmission Date: 20090719
  Serious: Yes (Death)
  Sender: FDA-Public Use
  Company Number: FR-AVENTIS-200910509EU

PATIENT
  Age: 95 Year
  Sex: Female

DRUGS (17)
  1. ENOXAPARIN SODIUM [Suspect]
     Route: 058
     Dates: start: 20090113, end: 20090114
  2. MEPRONIZINE                        /00789201/ [Concomitant]
     Indication: ANXIETY
     Route: 048
     Dates: end: 20090113
  3. AMLODIPINE [Concomitant]
     Indication: HYPERTENSIVE CARDIOMYOPATHY
     Route: 048
     Dates: end: 20090113
  4. DOMPERIDONE [Concomitant]
     Indication: NAUSEA
     Route: 048
     Dates: end: 20090112
  5. ACETAMINOPHEN [Concomitant]
     Route: 048
     Dates: end: 20090112
  6. DOLIPRANE [Concomitant]
     Route: 048
     Dates: start: 20090112, end: 20090113
  7. NORMACOL                           /00119401/ [Concomitant]
     Route: 054
     Dates: start: 20090112, end: 20090113
  8. SPASFON                            /00934601/ [Concomitant]
     Route: 042
     Dates: start: 20090113, end: 20090114
  9. LASIX [Concomitant]
     Indication: HYPERTENSIVE CARDIOMYOPATHY
     Route: 042
     Dates: start: 20090113, end: 20090113
  10. LASIX [Concomitant]
     Route: 042
     Dates: start: 20090114, end: 20090114
  11. PERFALGAN [Concomitant]
     Route: 042
     Dates: start: 20090113, end: 20090114
  12. CEFTAZIDIME [Concomitant]
     Indication: HYPERTENSIVE CARDIOMYOPATHY
     Route: 062
     Dates: start: 20090113, end: 20090114
  13. PRIMPERAN                          /00041901/ [Concomitant]
     Route: 042
     Dates: start: 20090113, end: 20090113
  14. POTASSIUM CHLORIDE [Concomitant]
     Route: 042
     Dates: start: 20090113, end: 20090114
  15. EQUANIL [Concomitant]
     Indication: ANXIETY
     Route: 048
     Dates: start: 20090113, end: 20090113
  16. ACUPAN [Concomitant]
     Route: 042
     Dates: start: 20090113, end: 20090113
  17. ELECTROLYTE [Concomitant]
     Dates: start: 20090101

REACTIONS (1)
  - CARDIAC ARREST [None]
